FAERS Safety Report 10083646 (Version 1)
Quarter: 2014Q2

REPORT INFORMATION
  Report Type: Spontaneous
  Country: US (occurrence: None)
  Receive Date: 20140416
  Receipt Date: 20140416
  Transmission Date: 20141212
  Serious: Yes (Disabling)
  Sender: FDA-Public Use
  Company Number: None

PATIENT
  Age: 63 Year
  Sex: Female
  Weight: 50.8 kg

DRUGS (15)
  1. ZIPRASIDONE [Suspect]
     Indication: HALLUCINATION, AUDITORY
     Dosage: 80 MG, 1 CAPSULE, TWICE DAILY, BY MOUTH
     Route: 048
     Dates: start: 20100826, end: 201209
  2. ZIPRASIDONE [Suspect]
     Indication: PARANOIA
     Dosage: 80 MG, 1 CAPSULE, TWICE DAILY, BY MOUTH
     Route: 048
     Dates: start: 20100826, end: 201209
  3. GEODON [Suspect]
     Indication: HALLUCINATION, AUDITORY
     Dosage: 80 MG, 1 CAPSULE, TWICE DAILY, BY MOUTH
     Route: 048
     Dates: start: 20100826, end: 201209
  4. GEODON [Suspect]
     Indication: PARANOIA
     Dosage: 80 MG, 1 CAPSULE, TWICE DAILY, BY MOUTH
     Route: 048
     Dates: start: 20100826, end: 201209
  5. LEVOTHYROXINE [Concomitant]
  6. LEXAPRO [Concomitant]
  7. SIMVASTATIN [Concomitant]
  8. CLONAZEPAM [Concomitant]
  9. AMBIEN [Concomitant]
  10. COQ10 [Concomitant]
  11. CITRACAL + CALCIUM [Concomitant]
  12. POTASSIUM [Concomitant]
  13. MAGNESIUM [Concomitant]
  14. MELATONIN [Concomitant]
  15. ALEVE [Concomitant]

REACTIONS (4)
  - Tardive dyskinesia [None]
  - Tongue ulceration [None]
  - Fatigue [None]
  - Dyskinesia [None]
